FAERS Safety Report 12832479 (Version 1)
Quarter: 2016Q4

REPORT INFORMATION
  Report Type: Spontaneous
  Country: US (occurrence: US)
  Receive Date: 20161010
  Receipt Date: 20161010
  Transmission Date: 20170207
  Serious: No
  Sender: FDA-Public Use
  Company Number: US-JAZZ-2016-US-012922

PATIENT
  Sex: Female

DRUGS (38)
  1. XYREM [Suspect]
     Active Substance: SODIUM OXYBATE
     Indication: CATAPLEXY
     Dosage: DOSE ADJUSTMENTS
     Route: 048
     Dates: start: 201012, end: 201603
  2. GARLIC. [Concomitant]
     Active Substance: GARLIC
  3. VIAGRA [Concomitant]
     Active Substance: SILDENAFIL CITRATE
  4. GABAPENTIN. [Concomitant]
     Active Substance: GABAPENTIN
  5. XYREM [Suspect]
     Active Substance: SODIUM OXYBATE
     Indication: NARCOLEPSY
     Dosage: 4.5 G, BID
     Route: 048
     Dates: start: 201008, end: 201012
  6. HYDROCHLOROTHIAZIDE. [Concomitant]
     Active Substance: HYDROCHLOROTHIAZIDE
  7. COREG [Concomitant]
     Active Substance: CARVEDILOL
  8. PRILOSEC [Concomitant]
     Active Substance: OMEPRAZOLE MAGNESIUM
  9. TYLENOL [Concomitant]
     Active Substance: ACETAMINOPHEN
  10. OXAZEPAM. [Concomitant]
     Active Substance: OXAZEPAM
  11. CYMBALTA [Concomitant]
     Active Substance: DULOXETINE HYDROCHLORIDE
  12. FUROSEMIDE. [Concomitant]
     Active Substance: FUROSEMIDE
  13. IBUPROFEN. [Concomitant]
     Active Substance: IBUPROFEN
  14. GUAIFENESIN. [Concomitant]
     Active Substance: GUAIFENESIN
  15. STRATTERA [Concomitant]
     Active Substance: ATOMOXETINE HYDROCHLORIDE
  16. CALCIUM +D [Concomitant]
     Active Substance: CALCIUM\VITAMIN D
  17. FLAXSEED [Concomitant]
     Active Substance: FLAX SEED
  18. MULTIVITAMIN [Concomitant]
     Active Substance: VITAMINS
  19. QUETIAPINE FUMARATE. [Concomitant]
     Active Substance: QUETIAPINE FUMARATE
  20. OXCARBAZEPINE. [Concomitant]
     Active Substance: OXCARBAZEPINE
  21. BENICAR [Concomitant]
     Active Substance: OLMESARTAN MEDOXOMIL
  22. BRINTELLIX [Concomitant]
     Active Substance: VORTIOXETINE HYDROBROMIDE
  23. XYREM [Suspect]
     Active Substance: SODIUM OXYBATE
     Dosage: 6 G, BID
     Route: 048
     Dates: start: 201603
  24. DEPAKOTE [Concomitant]
     Active Substance: DIVALPROEX SODIUM
  25. CINNAMON. [Concomitant]
     Active Substance: CINNAMON
  26. LOSARTAN POTASSIUM. [Concomitant]
     Active Substance: LOSARTAN POTASSIUM
  27. ZYPREXA [Concomitant]
     Active Substance: OLANZAPINE
  28. MULTAQ [Concomitant]
     Active Substance: DRONEDARONE
  29. VITAMIN B COMPLEX [Concomitant]
     Active Substance: CYANOCOBALAMIN\DEXPANTHENOL\NIACINAMIDE\PYRIDOXINE HYDROCHLORIDE\RIBOFLAVIN 5^-PHOSPHATE SODIUM\THIAMINE HYDROCHLORIDE\VITAMIN B COMPLEX
  30. LEVOTHYROXINE SODIUM. [Concomitant]
     Active Substance: LEVOTHYROXINE SODIUM
  31. PRAVASTATIN. [Concomitant]
     Active Substance: PRAVASTATIN
  32. CLINDAMYCIN HYDROCHLORIDE. [Concomitant]
     Active Substance: CLINDAMYCIN HYDROCHLORIDE
  33. SAPHRIS [Concomitant]
     Active Substance: ASENAPINE MALEATE
  34. LOSARTAN POTASSIUM AND HYDROCHLOROTHIAZIDE [Concomitant]
     Active Substance: HYDROCHLOROTHIAZIDE\LOSARTAN POTASSIUM
  35. LAMOTRIGINE. [Concomitant]
     Active Substance: LAMOTRIGINE
  36. DESIPRAMINE HCL [Concomitant]
     Active Substance: DESIPRAMINE HYDROCHLORIDE
  37. TRIAZOLAM. [Concomitant]
     Active Substance: TRIAZOLAM
  38. CLARITIN [Concomitant]
     Active Substance: LORATADINE

REACTIONS (1)
  - Thirst [Not Recovered/Not Resolved]
